FAERS Safety Report 10898198 (Version 1)
Quarter: 2015Q1

REPORT INFORMATION
  Report Type: Spontaneous
  Country: US (occurrence: None)
  Receive Date: 20150302
  Receipt Date: 20150302
  Transmission Date: 20150721
  Serious: Yes (Other)
  Sender: FDA-Public Use
  Company Number: None

PATIENT
  Age: 37 Year
  Sex: Female
  Weight: 127.01 kg

DRUGS (3)
  1. TWO BLOOD PRESSURE PILLS [Concomitant]
  2. MIRENA [Suspect]
     Active Substance: LEVONORGESTREL
     Indication: MENOMETRORRHAGIA
     Dosage: IUD, 5 YEARS
     Route: 067
  3. VITAMINS [Concomitant]
     Active Substance: VITAMINS

REACTIONS (6)
  - Haemorrhage [None]
  - Non-consummation [None]
  - Pain [None]
  - Fatigue [None]
  - Diarrhoea [None]
  - Feeling abnormal [None]

NARRATIVE: CASE EVENT DATE: 20141205
